FAERS Safety Report 6119301-4 (Version None)
Quarter: 2009Q1

REPORT INFORMATION
  Report Type: 
  Country: None (occurrence: None)
  Receive Date: 20090316
  Receipt Date: 20090304
  Transmission Date: 20090719
  Serious: Yes (Disabling)
  Sender: FDA-Public Use
  Company Number: PHHY2009CL07886

PATIENT
  Age: 60 Year
  Sex: Male

DRUGS (2)
  1. TAREG D [Suspect]
     Dosage: 80/12.5 MG (1 DF/DAY)
  2. ASPIRIN [Concomitant]
     Dosage: 100 MG

REACTIONS (3)
  - ANAL ABSCESS [None]
  - SURGERY [None]
  - WOUND [None]
